FAERS Safety Report 9830799 (Version 4)
Quarter: 2014Q1

REPORT INFORMATION
  Report Type: Spontaneous
  Country: US (occurrence: US)
  Receive Date: 20140120
  Receipt Date: 20140219
  Transmission Date: 20141002
  Serious: Yes (Hospitalization, Other)
  Sender: FDA-Public Use
  Company Number: US-GILEAD-2014-0092590

PATIENT
  Sex: Female

DRUGS (2)
  1. LETAIRIS [Suspect]
     Indication: PULMONARY HYPERTENSION
     Dosage: 5 MG, QD
     Route: 065
     Dates: start: 201306
  2. LETAIRIS [Suspect]
     Indication: CARDIAC VALVE DISEASE
     Dosage: 10 MG, UNK
     Route: 065
     Dates: start: 20130627

REACTIONS (2)
  - Cardiac failure [Unknown]
  - Fluid overload [Unknown]
